FAERS Safety Report 5475145-8 (Version None)
Quarter: 2007Q4

REPORT INFORMATION
  Report Type: 
  Country: None (occurrence: None)
  Receive Date: 20071002
  Receipt Date: 20070926
  Transmission Date: 20080405
  Serious: Yes (Other)
  Sender: FDA-Public Use
  Company Number: JP-PFIZER INC-2006050359

PATIENT
  Sex: Female
  Weight: 56 kg

DRUGS (5)
  1. ATARAX [Suspect]
     Indication: PREOPERATIVE CARE
     Route: 030
     Dates: start: 20060405, end: 20060405
  2. ATROPINE SULFATE [Suspect]
     Indication: PREOPERATIVE CARE
     Route: 030
     Dates: start: 20060405, end: 20060405
  3. TALION [Concomitant]
     Route: 048
     Dates: start: 20060302, end: 20060509
  4. RIZABEN [Concomitant]
     Route: 031
     Dates: start: 20060302, end: 20060509
  5. ALL OTHER THERAPEUTIC PRODUCTS [Concomitant]
     Route: 065

REACTIONS (1)
  - SKIN NECROSIS [None]
